FAERS Safety Report 12517611 (Version 4)
Quarter: 2016Q4

REPORT INFORMATION
  Report Type: Report from Study
  Country: CN (occurrence: CN)
  Receive Date: 20160630
  Receipt Date: 20161122
  Transmission Date: 20170207
  Serious: Yes (Other)
  Sender: FDA-Public Use
  Company Number: PHHY2016CN087779

PATIENT
  Age: 34 Year
  Sex: Male

DRUGS (103)
  1. PREDNISONE. [Suspect]
     Active Substance: PREDNISONE
     Indication: PRODUCT USED FOR UNKNOWN INDICATION
     Dosage: 50 MG, QD
     Route: 065
     Dates: start: 20160408, end: 20160408
  2. HUMAN SERUM ALBUMIN [Concomitant]
     Active Substance: ALBUMIN HUMAN
     Dosage: 100 ML, BID
     Route: 042
     Dates: start: 20160405, end: 20160411
  3. AMPHOMYCIN [Concomitant]
     Indication: INFECTION PROPHYLAXIS
     Dosage: 30 MG, QD
     Route: 042
     Dates: start: 20160406, end: 20160501
  4. DOPAMINE [Concomitant]
     Active Substance: DOPAMINE\DOPAMINE HYDROCHLORIDE
     Dosage: 10 MG, QD
     Route: 042
     Dates: start: 20160413, end: 20160416
  5. ERYTHROCYTES [Concomitant]
     Active Substance: HUMAN RED BLOOD CELL
     Indication: ANAEMIA
     Dosage: 6 U, QD
     Route: 042
     Dates: start: 20160504, end: 20160504
  6. FOLIC ACID. [Concomitant]
     Active Substance: FOLIC ACID
     Indication: VITAMIN SUPPLEMENTATION
     Dosage: 5 MG, QD
     Route: 048
     Dates: start: 20160502
  7. FOLIC ACID. [Concomitant]
     Active Substance: FOLIC ACID
     Dosage: 10 MG, TID
     Route: 048
     Dates: start: 20160503, end: 20160506
  8. FUROSEMIDE. [Concomitant]
     Active Substance: FUROSEMIDE
     Indication: DIURETIC THERAPY
     Dosage: 40 MG, QD
     Route: 042
     Dates: start: 20160403, end: 20160503
  9. FUROSEMIDE. [Concomitant]
     Active Substance: FUROSEMIDE
     Dosage: 40 MG, QD
     Route: 042
     Dates: start: 20160406, end: 20160407
  10. BETALOC [Concomitant]
     Active Substance: METOPROLOL TARTRATE
     Indication: BLOOD PRESSURE DECREASED
     Dosage: 47.5 MG, BID
     Route: 048
     Dates: start: 20160414, end: 20160506
  11. PARA-AMINOBENZOIC ACID [Concomitant]
     Indication: HAEMOSTASIS
     Dosage: 600 MG, QD
     Route: 042
     Dates: start: 20160405, end: 20160406
  12. PHENTOLAMINE MESYLATE. [Concomitant]
     Active Substance: PHENTOLAMINE MESYLATE
     Dosage: 10 MG, QD
     Route: 042
     Dates: start: 20160413, end: 20160416
  13. SCOPOLAMINE [Concomitant]
     Active Substance: SCOPOLAMINE
     Indication: PRODUCT USED FOR UNKNOWN INDICATION
     Dosage: 0.3 MG, QD
     Route: 042
     Dates: start: 20160405, end: 20160405
  14. TORASEMIDE [Concomitant]
     Active Substance: TORSEMIDE
     Dosage: 60 MG, QD
     Route: 042
     Dates: start: 20160413, end: 20160415
  15. POTASSIUM CHLORIDE. [Concomitant]
     Active Substance: POTASSIUM CHLORIDE
     Indication: BLOOD DISORDER
     Dosage: 60 ML, QD
     Route: 042
     Dates: start: 20160408, end: 20160408
  16. BASILIXIMAB [Suspect]
     Active Substance: BASILIXIMAB
     Indication: PRODUCT USED FOR UNKNOWN INDICATION
     Dosage: 20 MG, QD
     Route: 065
     Dates: start: 20160405, end: 20160405
  17. FUROSEMIDE. [Concomitant]
     Active Substance: FUROSEMIDE
     Dosage: 100 MG, QD
     Route: 042
     Dates: start: 20160413, end: 20160415
  18. HEPARIN SODIUM. [Concomitant]
     Active Substance: HEPARIN SODIUM
     Indication: PRODUCT USED FOR UNKNOWN INDICATION
     Dosage: 1.25 U (WU), QD
     Route: 042
     Dates: start: 20160405, end: 20160405
  19. LANSOPRAZOLE. [Concomitant]
     Active Substance: LANSOPRAZOLE
     Dosage: 60 MG, QD
     Route: 042
     Dates: start: 20160413, end: 20160416
  20. MAGNESIUM ISOGLYCYRRHIZINATE [Concomitant]
     Active Substance: MAGNESIUM ISOGLYCYRRHIZINATE
     Indication: PROPHYLAXIS
     Dosage: 200 MG, QD
     Route: 042
     Dates: start: 20160406, end: 20160417
  21. FAT EMULSION NOS [Concomitant]
     Active Substance: EGG PHOSPHOLIPIDS\SAFFLOWER OIL\SOYBEAN OIL
     Indication: NUTRITIONAL SUPPLEMENTATION
     Dosage: 250 ML, QD
     Route: 042
     Dates: start: 20160406, end: 20160407
  22. METHIONINE W/NICOTINAMIDE/RIBOFLAVIN SODIUM P [Concomitant]
     Indication: PROPHYLAXIS
     Dosage: 220 MG, QD
     Route: 042
     Dates: start: 20160406, end: 20160417
  23. PRAZOSIN HYDROCHLORIDE. [Concomitant]
     Active Substance: PRAZOSIN HYDROCHLORIDE
     Indication: HYPERTENSION
     Dosage: 1 MG, TID
     Route: 042
     Dates: start: 20160410, end: 20160506
  24. HAEMOCOAGULASE [Concomitant]
     Indication: HAEMOSTASIS
     Dosage: 3 IU, QD
     Route: 042
     Dates: start: 20160405, end: 20160406
  25. MYFORTIC [Suspect]
     Active Substance: MYCOPHENOLATE SODIUM
     Dosage: 720 MG, QD
     Route: 065
     Dates: start: 20160426, end: 20160429
  26. PREDNISONE. [Suspect]
     Active Substance: PREDNISONE
     Dosage: 10 MG, QD
     Route: 065
     Dates: start: 20160412, end: 20160412
  27. TACROLIMUS. [Suspect]
     Active Substance: TACROLIMUS
     Dosage: 9 MG, QD
     Route: 065
     Dates: start: 20160429, end: 20160503
  28. TACROLIMUS. [Suspect]
     Active Substance: TACROLIMUS
     Dosage: 8.5 MG, QD
     Route: 065
     Dates: start: 20160504, end: 20160506
  29. SODIUM BICARBONATE. [Concomitant]
     Active Substance: SODIUM BICARBONATE
     Indication: BLOOD DISORDER
     Dosage: 1500 ML, QD
     Route: 042
     Dates: start: 20160408, end: 20160408
  30. COBAMAMIDE [Concomitant]
     Active Substance: COBAMAMIDE
     Indication: ANAEMIA
     Dosage: 0.75 MG, TID
     Route: 048
     Dates: start: 20160503, end: 20160506
  31. ETAMSYLATE [Concomitant]
     Active Substance: ETHAMSYLATE
     Indication: HAEMOSTASIS
     Dosage: 2000 MG, QD
     Route: 042
     Dates: start: 20160405, end: 20160406
  32. LANSOPRAZOLE. [Concomitant]
     Active Substance: LANSOPRAZOLE
     Indication: PROPHYLAXIS
     Dosage: 60 MG, QD
     Route: 042
     Dates: start: 20160405, end: 20160412
  33. ZYVOX [Concomitant]
     Active Substance: LINEZOLID
     Indication: INFECTION PROPHYLAXIS
     Dosage: 600 MG, QD
     Route: 048
     Dates: start: 20160501, end: 20160501
  34. LINEZOLID. [Concomitant]
     Active Substance: LINEZOLID
     Indication: INFECTION PROPHYLAXIS
     Dosage: 600 MG, BID
     Route: 042
     Dates: start: 20160406, end: 20160408
  35. LOSEC [Concomitant]
     Active Substance: OMEPRAZOLE
     Indication: GASTRIC DISORDER
     Dosage: 10 MG, BID
     Route: 048
     Dates: start: 20160503, end: 20160506
  36. PHENTOLAMINE MESYLATE. [Concomitant]
     Active Substance: PHENTOLAMINE MESYLATE
     Indication: DIURETIC THERAPY
     Dosage: 10 MG, QD
     Route: 042
     Dates: start: 20160410, end: 20160411
  37. POTASSIUM CHLORIDE. [Concomitant]
     Active Substance: POTASSIUM CHLORIDE
     Indication: MINERAL SUPPLEMENTATION
     Dosage: 2000 MG, TID
     Route: 048
     Dates: start: 20160415, end: 20160415
  38. RECOMBINANT HUMAN ERYTHROPOIETIN [Concomitant]
     Active Substance: ERYTHROPOIETIN
     Dosage: 1 DF, QD
     Route: 042
     Dates: start: 20160408, end: 20160411
  39. SODIUM BICARBONATE. [Concomitant]
     Active Substance: SODIUM BICARBONATE
     Indication: SUPPLEMENTATION THERAPY
     Dosage: 1500 MG, TID
     Route: 048
     Dates: start: 20160418, end: 20160506
  40. SODIUM NITROPRUSSIDE [Concomitant]
     Active Substance: SODIUM NITROPRUSSIDE
     Dosage: 50 MG, TID
     Route: 042
     Dates: start: 20160407, end: 20160413
  41. TORASEMIDE [Concomitant]
     Active Substance: TORSEMIDE
     Dosage: 60 MG, QD
     Route: 042
     Dates: start: 20160411, end: 20160411
  42. MYFORTIC [Suspect]
     Active Substance: MYCOPHENOLATE SODIUM
     Indication: RENAL TRANSPLANT
     Dosage: 1440 MG, QD
     Route: 065
     Dates: start: 20160406, end: 20160421
  43. BASILIXIMAB [Suspect]
     Active Substance: BASILIXIMAB
     Dosage: 20 MG, QD
     Route: 065
     Dates: start: 20160409, end: 20160409
  44. METHYLPREDNISOLONE. [Suspect]
     Active Substance: METHYLPREDNISOLONE
     Dosage: 500 MG, QD
     Route: 065
     Dates: start: 20160406, end: 20160406
  45. TACROLIMUS. [Suspect]
     Active Substance: TACROLIMUS
     Dosage: 9.5 MG, QD
     Route: 065
     Dates: start: 20160419, end: 20160428
  46. INVERT SUGAR [Concomitant]
     Active Substance: INVERT SUGAR
     Indication: NUTRITIONAL SUPPLEMENTATION
     Dosage: 250 ML, QD
     Route: 042
     Dates: start: 20160406, end: 20160417
  47. CEFOPERAZONE SODIUM AND TAZOBACTAM SODIUM [Concomitant]
     Active Substance: CEFOPERAZONE\TAZOBACTAM SODIUM
     Indication: INFECTION PROPHYLAXIS
     Dosage: 3375 MG, BID
     Route: 042
     Dates: start: 20160405, end: 20160419
  48. CEFOTAXIME SODIUM W/SULBACTAM SODIUM [Concomitant]
     Active Substance: CEFOTAXIME SODIUM\SULBACTAM SODIUM
     Indication: INFECTION PROPHYLAXIS
     Dosage: 1125 MG, QD
     Route: 023
     Dates: start: 20160405, end: 20160405
  49. COENZYME [Concomitant]
     Active Substance: UBIDECARENONE
     Indication: SUPPLEMENTATION THERAPY
     Dosage: 20 MG, QD
     Route: 042
     Dates: start: 20160406, end: 20160417
  50. FUROSEMIDE. [Concomitant]
     Active Substance: FUROSEMIDE
     Dosage: 100 MG, BID
     Route: 042
     Dates: start: 20160405, end: 20160407
  51. FUROSEMIDE. [Concomitant]
     Active Substance: FUROSEMIDE
     Dosage: 20 MG, QD
     Route: 042
     Dates: start: 20160504, end: 20160504
  52. IRON SUCROSE [Concomitant]
     Active Substance: IRON SUCROSE
     Indication: ANAEMIA
     Dosage: 100 MG, QD
     Route: 042
     Dates: start: 20160410, end: 20160503
  53. LINEZOLID. [Concomitant]
     Active Substance: LINEZOLID
     Dosage: 600 MG, BID
     Route: 048
     Dates: start: 20160502, end: 20160503
  54. MOXIFLOXACIN. [Concomitant]
     Active Substance: MOXIFLOXACIN
     Indication: INFECTION PROPHYLAXIS
     Dosage: 400 MG, QD
     Route: 042
     Dates: start: 20160405, end: 20160405
  55. PHOSPHOCREATINE SODIUM [Concomitant]
     Indication: CARDIOVASCULAR EVENT PROPHYLAXIS
     Dosage: 2000 MG, QD
     Route: 042
     Dates: start: 20160406, end: 20160407
  56. POTASSIUM CHLORIDE. [Concomitant]
     Active Substance: POTASSIUM CHLORIDE
     Indication: PROPHYLAXIS
     Dosage: 2000 MG, TID
     Route: 048
     Dates: start: 20160417, end: 20160417
  57. RECOMBINANT HUMAN ERYTHROPOIETIN [Concomitant]
     Active Substance: ERYTHROPOIETIN
     Indication: ANAEMIA
     Dosage: 1 DF, QD
     Route: 042
     Dates: start: 20160428, end: 20160429
  58. RECOMBINANT HUMAN ERYTHROPOIETIN [Concomitant]
     Active Substance: ERYTHROPOIETIN
     Dosage: 1 DF, QD
     Route: 042
     Dates: start: 20160503, end: 20160503
  59. RECOMBINANT HUMAN ERYTHROPOIETIN [Concomitant]
     Active Substance: ERYTHROPOIETIN
     Dosage: 1 DF, QD
     Route: 042
     Dates: start: 20160425, end: 20160425
  60. RECOMBINANT HUMAN ERYTHROPOIETIN [Concomitant]
     Active Substance: ERYTHROPOIETIN
     Dosage: 1 DF, QD
     Route: 042
     Dates: start: 20160420, end: 20160422
  61. SODIUM BICARBONATE. [Concomitant]
     Active Substance: SODIUM BICARBONATE
     Dosage: 50000 MG, QD
     Route: 048
     Dates: start: 20160428, end: 20160428
  62. TORASEMIDE [Concomitant]
     Active Substance: TORSEMIDE
     Indication: DIURETIC THERAPY
     Dosage: 40 MG, BID
     Route: 042
     Dates: start: 20160408, end: 20160409
  63. MYFORTIC [Suspect]
     Active Substance: MYCOPHENOLATE SODIUM
     Dosage: 360 MG, QD
     Route: 065
     Dates: start: 20160430
  64. TACROLIMUS. [Suspect]
     Active Substance: TACROLIMUS
     Dosage: 10 MG, QD
     Route: 065
     Dates: start: 20160414, end: 20160418
  65. HUMAN SERUM ALBUMIN [Concomitant]
     Active Substance: ALBUMIN HUMAN
     Indication: SUPPLEMENTATION THERAPY
     Dosage: 100 ML, QD
     Route: 042
     Dates: start: 20160411, end: 20160419
  66. DOPAMINE [Concomitant]
     Active Substance: DOPAMINE\DOPAMINE HYDROCHLORIDE
     Indication: DIURETIC THERAPY
     Dosage: 10 MG, BID
     Route: 042
     Dates: start: 20160405, end: 20160407
  67. DOPAMINE [Concomitant]
     Active Substance: DOPAMINE\DOPAMINE HYDROCHLORIDE
     Dosage: 10 MG, QD
     Route: 042
     Dates: start: 20160410, end: 20160411
  68. NATRILIX [Concomitant]
     Active Substance: INDAPAMIDE
     Indication: HYPERTENSION
     Dosage: 1.5 MG, QD
     Route: 042
     Dates: start: 20160414, end: 20160503
  69. LINEZOLID. [Concomitant]
     Active Substance: LINEZOLID
     Dosage: 600 MG, QD
     Route: 042
     Dates: start: 20160412, end: 20160501
  70. LOSEC [Concomitant]
     Active Substance: OMEPRAZOLE
     Indication: PROPHYLAXIS
     Dosage: 10 MG, BID
     Route: 048
     Dates: start: 20160503, end: 20160506
  71. RECOMBINANT HUMAN ERYTHROPOIETIN [Concomitant]
     Active Substance: ERYTHROPOIETIN
     Dosage: 1 DF, QD
     Route: 042
     Dates: start: 20160502, end: 20160502
  72. RECOMBINANT HUMAN ERYTHROPOIETIN [Concomitant]
     Active Substance: ERYTHROPOIETIN
     Dosage: 1 DF, QD
     Route: 042
     Dates: start: 20160418, end: 20160418
  73. TORASEMIDE [Concomitant]
     Active Substance: TORSEMIDE
     Dosage: 60 MG, BID
     Route: 042
     Dates: start: 20160410, end: 20160410
  74. TORASEMIDE [Concomitant]
     Active Substance: TORSEMIDE
     Dosage: 60 MG, BID
     Route: 042
     Dates: start: 20160413, end: 20160413
  75. METHYLPREDNISOLONE. [Suspect]
     Active Substance: METHYLPREDNISOLONE
     Indication: PRODUCT USED FOR UNKNOWN INDICATION
     Dosage: 1000 MG, QD
     Route: 065
     Dates: start: 20160405, end: 20160405
  76. SODIUM BICARBONATE. [Concomitant]
     Active Substance: SODIUM BICARBONATE
     Indication: SUPPLEMENTATION THERAPY
     Dosage: 250 MG, QD
     Route: 042
     Dates: start: 20160405, end: 20160405
  77. ALANYL GLUTAMINE [Concomitant]
     Active Substance: ALANYL GLUTAMINE
     Indication: NUTRITIONAL SUPPLEMENTATION
     Dosage: 20000 MG, QD
     Route: 042
     Dates: start: 20160406, end: 20160407
  78. CEFOTAXIME SODIUM W/SULBACTAM SODIUM [Concomitant]
     Active Substance: CEFOTAXIME SODIUM\SULBACTAM SODIUM
     Indication: SKIN TEST POSITIVE
     Dosage: 3375 MG, BID
     Route: 042
     Dates: start: 20160420, end: 20160501
  79. NIFEREX (POLYSACCHARIDE-IRON COMPLEX) [Concomitant]
     Active Substance: IRON\POLYSACCHARIDES
     Indication: ANAEMIA
     Dosage: 150 MG, QD
     Route: 048
     Dates: start: 20160504, end: 20160506
  80. BETALOC [Concomitant]
     Active Substance: METOPROLOL TARTRATE
     Indication: PRODUCTIVE COUGH
     Dosage: 30 MG, QD
     Route: 055
     Dates: start: 20160417, end: 20160418
  81. PHENOBARBITAL. [Concomitant]
     Active Substance: PHENOBARBITAL
     Indication: PRODUCT USED FOR UNKNOWN INDICATION
     Dosage: 100 MG, QD
     Route: 042
     Dates: start: 20160405, end: 20160405
  82. PHENTOLAMINE MESYLATE. [Concomitant]
     Active Substance: PHENTOLAMINE MESYLATE
     Dosage: 10 MG, BID
     Route: 042
     Dates: start: 20160405, end: 20160407
  83. RIBOFLAVIN SODIUM PHOSPHATE [Concomitant]
     Indication: NUTRITIONAL SUPPLEMENTATION
     Dosage: 40 MG, QD
     Route: 042
     Dates: start: 20160406, end: 20160417
  84. MYFORTIC [Suspect]
     Active Substance: MYCOPHENOLATE SODIUM
     Dosage: 1080 MG, QD
     Route: 065
     Dates: start: 20160422, end: 20160425
  85. PREDNISONE. [Suspect]
     Active Substance: PREDNISONE
     Dosage: 40 MG, QD
     Route: 065
     Dates: start: 20160409, end: 20160409
  86. PREDNISONE. [Suspect]
     Active Substance: PREDNISONE
     Dosage: 20 MG, QD
     Route: 065
     Dates: start: 20160411, end: 20160411
  87. DEZOCINE [Concomitant]
     Active Substance: DEZOCINE
     Indication: PAIN
     Dosage: 20 MG, QD
     Route: 042
     Dates: start: 20160405, end: 20160408
  88. FUROSEMIDE. [Concomitant]
     Active Substance: FUROSEMIDE
     Dosage: 80 MG, QD
     Route: 042
     Dates: start: 20160416, end: 20160416
  89. RECOMBINANT HUMAN ERYTHROPOIETIN [Concomitant]
     Active Substance: ERYTHROPOIETIN
     Dosage: 1 DF, QD
     Route: 042
     Dates: start: 20160413, end: 20160413
  90. RECOMBINANT HUMAN ERYTHROPOIETIN [Concomitant]
     Active Substance: ERYTHROPOIETIN
     Dosage: 1 DF, QD
     Route: 042
     Dates: start: 20160415, end: 20160416
  91. TORASEMIDE [Concomitant]
     Active Substance: TORSEMIDE
     Dosage: 40 MG, QD
     Route: 042
     Dates: start: 20160417, end: 20160417
  92. TORASEMIDE [Concomitant]
     Active Substance: TORSEMIDE
     Dosage: 40 MG, QD
     Route: 042
     Dates: start: 20160406, end: 20160407
  93. TORASEMIDE [Concomitant]
     Active Substance: TORSEMIDE
     Dosage: 60 MG, BID
     Route: 042
     Dates: start: 20160408, end: 20160408
  94. VORICONAZOLE. [Concomitant]
     Active Substance: VORICONAZOLE
     Indication: PRODUCT USED FOR UNKNOWN INDICATION
     Dosage: 200 MG, QD
     Route: 042
     Dates: start: 20160405, end: 20160405
  95. PREDNISONE. [Suspect]
     Active Substance: PREDNISONE
     Dosage: 30 MG, QD
     Route: 065
     Dates: start: 20160410, end: 20160410
  96. TACROLIMUS. [Suspect]
     Active Substance: TACROLIMUS
     Indication: PRODUCT USED FOR UNKNOWN INDICATION
     Dosage: 6 MG, QD
     Route: 065
     Dates: start: 20160407, end: 20160413
  97. ALPROSTADIL. [Concomitant]
     Active Substance: ALPROSTADIL
     Indication: CARDIOVASCULAR EVENT PROPHYLAXIS
     Dosage: 20 UG, QD
     Route: 042
     Dates: start: 20160406, end: 20160503
  98. MUCOSOLVAN [Concomitant]
     Active Substance: AMBROXOL HYDROCHLORIDE
     Indication: PRODUCTIVE COUGH
     Dosage: 30 MG, QD
     Route: 055
     Dates: start: 20160416, end: 20160416
  99. FUROSEMIDE. [Concomitant]
     Active Substance: FUROSEMIDE
     Dosage: 60 MG, QD
     Route: 042
     Dates: start: 20160410, end: 20160411
  100. LEVAMLODIPINE BESILATE [Concomitant]
     Active Substance: LEVAMLODIPINE BESYLATE
     Indication: HYPERTENSION
     Dosage: 5 MG, BID
     Route: 048
     Dates: start: 20160409, end: 20160506
  101. NICARDIPINE HYDROCHLORIDE. [Concomitant]
     Active Substance: NICARDIPINE HYDROCHLORIDE
     Indication: HYPERTENSION
     Dosage: 40 MG, BID
     Route: 048
     Dates: start: 20160415, end: 20160506
  102. SODIUM NITROPRUSSIDE [Concomitant]
     Active Substance: SODIUM NITROPRUSSIDE
     Indication: HYPERTENSION
     Dosage: 50 MG, BID
     Route: 042
     Dates: start: 20160405, end: 20160406
  103. BACILLUS LICHENFORMIS [Concomitant]
     Indication: DIARRHOEA
     Dosage: 500 MG, TID
     Route: 048
     Dates: start: 20160417, end: 20160506

REACTIONS (12)
  - Abdominal discomfort [Recovering/Resolving]
  - Diarrhoea [Recovered/Resolved]
  - Diarrhoea [Recovering/Resolving]
  - Hyperuricaemia [Recovering/Resolving]
  - Blood glucose increased [Unknown]
  - Incision site pain [Recovering/Resolving]
  - Neutrophil count increased [Unknown]
  - Lymphocyte count decreased [Unknown]
  - Blood urea increased [Unknown]
  - Platelet count decreased [Unknown]
  - Anaemia [Unknown]
  - Haemoglobin decreased [Unknown]

NARRATIVE: CASE EVENT DATE: 20160405
